FAERS Safety Report 6460280-8 (Version None)
Quarter: 2009Q4

REPORT INFORMATION
  Report Type: 
  Country: None (occurrence: None)
  Receive Date: 20091130
  Receipt Date: 20091118
  Transmission Date: 20100525
  Serious: Yes (Hospitalization, Other)
  Sender: FDA-Public Use
  Company Number: PHEH2009US10673

PATIENT
  Sex: Male

DRUGS (12)
  1. SANDIMMUNE [Suspect]
     Indication: RENAL TRANSPLANT
     Dosage: 1.5 ML, BID
     Route: 048
     Dates: start: 20031201
  2. SANDI [Concomitant]
  3. COLCHICINE [Concomitant]
     Dosage: 0.6 MG PRN
     Route: 048
     Dates: start: 20070808
  4. TERAZOSIN HYDROCHLORIDE [Concomitant]
     Dosage: 5 MG, QD
     Route: 048
     Dates: start: 20070411
  5. IMURAN [Concomitant]
     Dosage: 50 MG, 2 PO, QD
     Route: 048
     Dates: start: 20070411
  6. PREDNISONE TAB [Concomitant]
     Dosage: 10 MG, QD
     Route: 048
     Dates: start: 20070411
  7. LORAZEPAM [Concomitant]
     Indication: ANXIETY
     Dosage: 1 MG, 1 EVERY DAY, AS NEEDED
     Route: 048
  8. METOPROLOL TARTRATE [Concomitant]
     Dosage: 50 MG, 1 TWO TIMES A DAY
     Route: 048
     Dates: start: 20060403
  9. VYTORIN [Concomitant]
     Dosage: 10-80 MG, 1/2 EVERY DAY
     Route: 048
     Dates: start: 20060403
  10. PLAVIX [Concomitant]
     Dosage: 75 MG, QD
     Route: 048
     Dates: start: 20051217
  11. ASPIRIN [Concomitant]
     Dosage: 325 MG, QD
     Route: 048
     Dates: start: 20051217
  12. MULTI-VITAMINS [Concomitant]
     Dosage: 1 EVERY DAY
     Route: 048
     Dates: start: 20040808

REACTIONS (19)
  - ABSCESS DRAINAGE [None]
  - ABSCESS LIMB [None]
  - ANXIETY [None]
  - CHEST PAIN [None]
  - CHOLELITHIASIS [None]
  - DEPRESSION [None]
  - DIARRHOEA [None]
  - HAEMATOCRIT DECREASED [None]
  - HAEMOGLOBIN DECREASED [None]
  - HEPATIC STEATOSIS [None]
  - HYPERCALCAEMIA [None]
  - NAUSEA [None]
  - PHOSPHORUS METABOLISM DISORDER [None]
  - PROTEINURIA [None]
  - RENAL ATROPHY [None]
  - SECONDARY HYPERTENSION [None]
  - SPLENOMEGALY [None]
  - TREATMENT NONCOMPLIANCE [None]
  - VOMITING [None]
